FAERS Safety Report 12070116 (Version 1)
Quarter: 2016Q1

REPORT INFORMATION
  Report Type: Spontaneous
  Country: US (occurrence: US)
  Receive Date: 20160211
  Receipt Date: 20160211
  Transmission Date: 20160526
  Serious: No
  Sender: FDA-Public Use
  Company Number: US-EMD SERONO-8066830

PATIENT
  Age: 38 Year
  Sex: Female

DRUGS (1)
  1. REBIF [Suspect]
     Active Substance: INTERFERON BETA-1A
     Indication: MULTIPLE SCLEROSIS
     Route: 058

REACTIONS (5)
  - Pain [Unknown]
  - Flushing [Unknown]
  - Abdominal discomfort [Unknown]
  - Activities of daily living impaired [Not Recovered/Not Resolved]
  - Multiple sclerosis [Not Recovered/Not Resolved]
